FAERS Safety Report 5518576-X (Version None)
Quarter: 2007Q4

REPORT INFORMATION
  Report Type: 
  Country: None (occurrence: None)
  Receive Date: 20071115
  Receipt Date: 20071105
  Transmission Date: 20080405
  Serious: Yes (Other)
  Sender: FDA-Public Use
  Company Number: US-PFIZER INC-2007093202

PATIENT
  Sex: Male
  Weight: 80.7 kg

DRUGS (6)
  1. LIPITOR [Suspect]
     Indication: BLOOD CHOLESTEROL INCREASED
  2. CADUET [Suspect]
     Indication: HYPERTENSION
     Dosage: TEXT:5 MG/40 MG-FREQ:DAILY
  3. CADUET [Suspect]
     Indication: BLOOD CHOLESTEROL INCREASED
  4. NORVASC [Suspect]
     Indication: HYPERTENSION
  5. ATENOLOL [Suspect]
     Indication: HYPERTENSION
  6. INSULIN [Concomitant]

REACTIONS (6)
  - BLOOD CHOLESTEROL INCREASED [None]
  - BLOOD GLUCOSE INCREASED [None]
  - FLATULENCE [None]
  - HYPERTENSION [None]
  - MUSCLE STRAIN [None]
  - MYALGIA [None]
